FAERS Safety Report 8050096-3 (Version None)
Quarter: 2011Q4

REPORT INFORMATION
  Report Type: 
  Country: None (occurrence: None)
  Receive Date: 20111212
  Receipt Date: 20110826
  Transmission Date: 20120403
  Serious: Yes (Other)
  Sender: FDA-Public Use
  Company Number: PHHY2011US69779

PATIENT
  Sex: Female

DRUGS (2)
  1. EXTAVIA [Suspect]
     Indication: MULTIPLE SCLEROSIS
     Dosage: 0.3MG,QOD, SUBCUTANEOUS; 0.125MG,QOD, SUBCUTANEOUS; 0.5ML, SUBCUTANEOUS
     Route: 058
     Dates: start: 20110616
  2. EXTAVIA [Suspect]
     Indication: MULTIPLE SCLEROSIS
     Dosage: 0.3MG,QOD, SUBCUTANEOUS; 0.125MG,QOD, SUBCUTANEOUS; 0.5ML, SUBCUTANEOUS
     Route: 058
     Dates: start: 20110801

REACTIONS (4)
  - CONTUSION [None]
  - INJECTION SITE REACTION [None]
  - VOMITING [None]
  - MULTIPLE SCLEROSIS RELAPSE [None]
